FAERS Safety Report 6182194-3 (Version None)
Quarter: 2009Q2

REPORT INFORMATION
  Report Type: 
  Country: None (occurrence: None)
  Receive Date: 20090507
  Receipt Date: 20090428
  Transmission Date: 20091009
  Serious: Yes (Other)
  Sender: FDA-Public Use
  Company Number: PHHY2009JP16068

PATIENT
  Age: 69 Year
  Sex: Female

DRUGS (2)
  1. COMTAN [Suspect]
     Indication: PARKINSON'S DISEASE
     Dosage: 100 MG, QID
     Route: 048
     Dates: start: 20080901
  2. COMTAN [Suspect]
     Indication: DRUG EFFECT DECREASED

REACTIONS (2)
  - GASTRIC ULCER [None]
  - IRON DEFICIENCY ANAEMIA [None]
